FAERS Safety Report 6845614-4 (Version None)
Quarter: 2010Q3

REPORT INFORMATION
  Report Type: 
  Country: None (occurrence: None)
  Receive Date: 20100715
  Receipt Date: 20070827
  Transmission Date: 20110219
  Serious: No
  Sender: FDA-Public Use
  Company Number: US-PFIZER INC-2007071157

PATIENT
  Sex: Female
  Weight: 55.3 kg

DRUGS (5)
  1. CHANTIX [Suspect]
     Indication: SMOKING CESSATION THERAPY
     Route: 048
     Dates: start: 20070827
  2. ATENOLOL [Concomitant]
  3. ACETYLSALICYLIC ACID [Concomitant]
  4. XALATAN [Concomitant]
     Indication: GLAUCOMA
  5. LAMICTAL [Concomitant]

REACTIONS (1)
  - NAUSEA [None]
